FAERS Safety Report 6573924-7 (Version None)
Quarter: 2010Q1

REPORT INFORMATION
  Report Type: 
  Country: None (occurrence: None)
  Receive Date: 20100208
  Receipt Date: 20100129
  Transmission Date: 20100710
  Serious: Yes (Other)
  Sender: FDA-Public Use
  Company Number: DE-ABBOTT-10P-062-0619918-00

PATIENT
  Age: 59 Year
  Sex: Female
  Weight: 57 kg

DRUGS (6)
  1. HUMIRA [Suspect]
     Indication: SPONDYLITIS
     Dates: start: 20070927, end: 20080611
  2. INFLIXIMAB [Suspect]
     Indication: SPONDYLITIS
     Dates: start: 20070327, end: 20070927
  3. SULFASALAZINE [Suspect]
     Indication: SPONDYLITIS
     Dates: start: 20080611, end: 20090122
  4. ETANERCEPT [Suspect]
     Indication: SPONDYLITIS
     Dates: start: 20090122, end: 20091214
  5. CALCIMAGON [Concomitant]
     Indication: DRUG USE FOR UNKNOWN INDICATION
  6. CELEBREX [Concomitant]
     Indication: DRUG USE FOR UNKNOWN INDICATION

REACTIONS (2)
  - CARDIOMEGALY [None]
  - PERICARDIAL EFFUSION [None]
